FAERS Safety Report 22271979 (Version 1)
Quarter: 2023Q2

REPORT INFORMATION
  Report Type: Report from Study
  Country: CO (occurrence: CO)
  Receive Date: 20230502
  Receipt Date: 20230502
  Transmission Date: 20230721
  Serious: Yes (Hospitalization)
  Sender: FDA-Public Use
  Company Number: CO-UCBSA-2023022318

PATIENT
  Age: 78 Year
  Sex: Female

DRUGS (3)
  1. ROTIGOTINE [Suspect]
     Active Substance: ROTIGOTINE
     Indication: Parkinson^s disease
     Dosage: 4 MILLIGRAM, ONCE DAILY (QD)
     Route: 062
     Dates: start: 20211020
  2. CARBIDOPA + LEVODOPA [CARBIDOPA;LEVODOPA] [Concomitant]
     Indication: Parkinson^s disease
     Dosage: UNK
     Route: 048
  3. AMANTADINA [AMANTADINE] [Concomitant]
     Indication: Parkinson^s disease
     Dosage: 100 MILLIGRAM
     Route: 048

REACTIONS (1)
  - Urinary tract infection [Unknown]

NARRATIVE: CASE EVENT DATE: 20230423
